FAERS Safety Report 8878971 (Version 1)
Quarter: 2012Q4

REPORT INFORMATION
  Report Type: 
  Country: FR (occurrence: FR)
  Receive Date: 20121026
  Receipt Date: 20121026
  Transmission Date: 20130627
  Serious: Yes (Hospitalization)
  Sender: FDA-Public Use
  Company Number: FR-BRISTOL-MYERS SQUIBB COMPANY-17051178

PATIENT
  Age: 76 Year
  Sex: Female

DRUGS (7)
  1. COUMADIN TABS 2 MG [Suspect]
     Indication: DEEP VEIN THROMBOSIS
     Dosage: scored tablet
2Aug12-Ong
     Dates: start: 2010, end: 20120623
  2. TAHOR [Concomitant]
     Indication: PROPHYLAXIS
     Dosage: film-coated tablet
     Route: 048
     Dates: start: 2010
  3. INEXIUM [Concomitant]
     Route: 048
  4. STILNOX [Concomitant]
     Indication: INSOMNIA
     Route: 048
  5. ACTONEL [Concomitant]
     Indication: OSTEOPOROSIS
     Dosage: tabs
     Route: 048
     Dates: end: 20120629
  6. DOLIPRANE [Concomitant]
     Indication: PAIN
     Route: 048
     Dates: end: 20120623
  7. VITAMIN D3 [Concomitant]
     Indication: PROPHYLAXIS
     Route: 048
     Dates: end: 20120623

REACTIONS (3)
  - Anaemia [Recovered/Resolved]
  - Melaena [Recovered/Resolved]
  - Gastrointestinal haemorrhage [Recovered/Resolved]
